FAERS Safety Report 12299203 (Version 1)
Quarter: 2016Q2

REPORT INFORMATION
  Report Type: Spontaneous
  Country: US (occurrence: None)
  Receive Date: 20160422
  Receipt Date: 20160422
  Transmission Date: 20160815
  Serious: Yes (Life-Threatening, Hospitalization)
  Sender: FDA-Public Use
  Company Number: None

PATIENT
  Age: 45 Year
  Sex: Male

DRUGS (1)
  1. GLATIRAMER ACETATE INJECTION, 20 MG [Suspect]
     Active Substance: GLATIRAMER ACETATE
     Indication: PRODUCT USED FOR UNKNOWN INDICATION
     Route: 058
     Dates: start: 20160401, end: 20160419

REACTIONS (3)
  - Feeling hot [None]
  - Back pain [None]
  - Injection site atrophy [None]

NARRATIVE: CASE EVENT DATE: 20160419
